FAERS Safety Report 19361914 (Version 2)
Quarter: 2021Q3

REPORT INFORMATION
  Report Type: Other
  Country: CA (occurrence: CA)
  Receive Date: 20210603
  Receipt Date: 20210709
  Transmission Date: 20211014
  Serious: Yes (Other)
  Sender: FDA-Public Use
  Company Number: CA-APOTEX-2021AP012712

PATIENT
  Age: 63 Year
  Sex: Female

DRUGS (10)
  1. QUETIAPINE. [Interacting]
     Active Substance: QUETIAPINE
     Indication: BIPOLAR II DISORDER
     Dosage: 300 MILLIGRAM
     Route: 065
  2. APO?LITHIUM CARBONATE [Interacting]
     Active Substance: LITHIUM CARBONATE
     Indication: BIPOLAR II DISORDER
     Dosage: UNK
     Route: 065
  3. QUETIAPINE. [Interacting]
     Active Substance: QUETIAPINE
     Indication: BIPOLAR DISORDER
     Dosage: UNK
     Route: 048
  4. TRAMADOL. [Interacting]
     Active Substance: TRAMADOL
     Indication: FIBROMYALGIA
     Dosage: 100 MILLIGRAM, QD
     Route: 065
  5. APO?LITHIUM CARBONATE [Suspect]
     Active Substance: LITHIUM CARBONATE
     Indication: BIPOLAR DISORDER
     Dosage: 600 MILLIGRAM
     Route: 065
  6. QUETIAPINE. [Interacting]
     Active Substance: QUETIAPINE
     Indication: FIBROMYALGIA
     Dosage: 300 MILLIGRAM
     Route: 048
  7. LITHIUM. [Concomitant]
     Active Substance: LITHIUM
     Indication: BIPOLAR II DISORDER
     Dosage: 600 MILLIGRAM
     Route: 065
  8. QUETIAPINE. [Interacting]
     Active Substance: QUETIAPINE
     Indication: AFFECTIVE DISORDER
  9. APO?LITHIUM CARBONATE [Interacting]
     Active Substance: LITHIUM CARBONATE
     Indication: AFFECTIVE DISORDER
  10. TRAMADOL. [Interacting]
     Active Substance: TRAMADOL
     Dosage: 100 MILLIGRAM
     Route: 065

REACTIONS (4)
  - Hypomania [Recovered/Resolved]
  - Serotonin syndrome [Recovered/Resolved]
  - Drug interaction [Recovered/Resolved]
  - Drug ineffective [Recovered/Resolved]
